FAERS Safety Report 7768074-8 (Version None)
Quarter: 2011Q3

REPORT INFORMATION
  Report Type: 
  Country: None (occurrence: None)
  Receive Date: 20110922
  Receipt Date: 20110916
  Transmission Date: 20111222
  Serious: Yes (Other)
  Sender: FDA-Public Use
  Company Number: JP-PFIZER INC-2011091177

PATIENT
  Age: 64 Year
  Sex: Female
  Weight: 75.2 kg

DRUGS (16)
  1. ZONISAMIDE [Concomitant]
     Indication: METASTASES TO CENTRAL NERVOUS SYSTEM
     Dosage: 100 MG, 2X/DAY
     Route: 048
     Dates: start: 20110228
  2. PASETOCIN [Concomitant]
     Indication: SINUSITIS
     Dosage: 500 MG, 3X/DAY
     Route: 048
     Dates: start: 20110401
  3. PRORENAL [Concomitant]
     Indication: SPINAL COLUMN STENOSIS
     Dosage: 5 UG, 3X/DAY
     Route: 048
     Dates: start: 20100630
  4. AMLODIPINE [Concomitant]
     Indication: HYPERTENSION
     Dosage: 5 MG, 1X/DAY
     Route: 048
     Dates: start: 20110331, end: 20110412
  5. FOLIC ACID [Concomitant]
     Dosage: 5 MG, WEEKLY
     Route: 048
     Dates: start: 20101020, end: 20110330
  6. LYRICA [Concomitant]
     Indication: NEUROPATHY PERIPHERAL
     Dosage: 75 MG, 2X/DAY
     Route: 048
     Dates: start: 20100818, end: 20110805
  7. CANDESARTAN CILEXETIL [Concomitant]
     Indication: HYPERTENSION
     Dosage: UNK
     Route: 048
     Dates: start: 20110202, end: 20110330
  8. METHOTREXATE [Concomitant]
     Indication: RHEUMATOID ARTHRITIS
     Dosage: 2 MG, 2X/DAY
     Route: 048
     Dates: start: 20100818, end: 20110330
  9. SUTENT [Suspect]
     Indication: RENAL CELL CARCINOMA
     Dosage: 25 MG, 1X/DAY
     Route: 048
     Dates: start: 20100309
  10. AMLODIPINE [Concomitant]
     Dosage: 10 MG, 1X/DAY
     Route: 048
     Dates: start: 20110413
  11. MUCODYNE [Concomitant]
     Indication: GASTRITIS
     Dosage: 250 MG, 3X/DAY
     Route: 048
     Dates: start: 20110401, end: 20110415
  12. OMEPRAZOLE [Concomitant]
     Indication: GASTRIC ULCER
     Dosage: 20 MG, 1X/DAY
     Route: 048
     Dates: start: 20100628, end: 20110829
  13. PREDNISOLONE [Concomitant]
     Indication: RHEUMATOID ARTHRITIS
     Dosage: 2.5 MG, 2X/DAY
     Route: 048
  14. CELECOXIB [Concomitant]
     Indication: SPINAL COLUMN STENOSIS
     Dosage: 200 MG, 2X/DAY
     Route: 048
     Dates: start: 20091202
  15. FOSAMAX [Suspect]
     Indication: OSTEOPOROSIS
     Dosage: 35 MG, WEEKLY
     Route: 048
     Dates: start: 20100611, end: 20110414
  16. METHYCOBAL [Concomitant]
     Indication: SPINAL COLUMN STENOSIS
     Dosage: 500 UG, 3X/DAY
     Route: 048
     Dates: start: 20091202

REACTIONS (5)
  - PYREXIA [None]
  - PLATELET COUNT DECREASED [None]
  - DIZZINESS [None]
  - OSTEONECROSIS OF JAW [None]
  - SINUSITIS [None]
